FAERS Safety Report 10183080 (Version 1)
Quarter: 2014Q2

REPORT INFORMATION
  Report Type: Spontaneous
  Country: US (occurrence: US)
  Receive Date: 20140520
  Receipt Date: 20140520
  Transmission Date: 20141212
  Serious: No
  Sender: FDA-Public Use
  Company Number: US-BAYER-2014-073568

PATIENT
  Age: 81 Year
  Sex: Female
  Weight: 59 kg

DRUGS (4)
  1. ALEVE GELCAPS [Suspect]
     Dosage: UNK
     Route: 048
  2. PREDNISONE [Concomitant]
     Dosage: UNK
  3. AZITHROMYCIN [Concomitant]
     Dosage: UNK
  4. MUCINEX [Concomitant]
     Dosage: UNK

REACTIONS (1)
  - Extra dose administered [None]
